FAERS Safety Report 6945804-6 (Version None)
Quarter: 2010Q3

REPORT INFORMATION
  Report Type: 
  Country: None (occurrence: None)
  Receive Date: 20100827
  Receipt Date: 20100818
  Transmission Date: 20110219
  Serious: Yes (Hospitalization)
  Sender: FDA-Public Use
  Company Number: IT-JNJCH-2010019327

PATIENT
  Age: 23 Month
  Sex: Male

DRUGS (1)
  1. OXYMETAZOLINE HCL [Suspect]
     Indication: RHINORRHOEA
     Dosage: TEXT:^A GENEROUS AMOUNT^
     Route: 045

REACTIONS (2)
  - DRUG TOXICITY [None]
  - WRONG DRUG ADMINISTERED [None]
